FAERS Safety Report 9970288 (Version 2)
Quarter: 2014Q1

REPORT INFORMATION
  Report Type: Spontaneous
  Country: US (occurrence: US)
  Receive Date: 20140306
  Receipt Date: 20140306
  Transmission Date: 20141002
  Serious: Yes (Other)
  Sender: FDA-Public Use
  Company Number: US-LUNDBECK-DKLU1096489

PATIENT
  Age: 22 Year
  Sex: Female

DRUGS (6)
  1. SABRIL (TABLET) [Suspect]
     Indication: SIMPLE PARTIAL SEIZURES
     Route: 048
     Dates: start: 20130926
  2. SABRIL (TABLET) [Suspect]
     Indication: EPILEPSY
     Dosage: TITRATE UP BY 500 MG EVERY WEEK UNTIL 3 GRAMS A DAY IS REACHED
     Route: 048
  3. SABRIL (TABLET) [Suspect]
     Indication: COMPLEX PARTIAL SEIZURES
     Route: 048
  4. LAMICTAL [Concomitant]
     Indication: PRODUCT USED FOR UNKNOWN INDICATION
  5. BANZEL [Concomitant]
     Indication: PRODUCT USED FOR UNKNOWN INDICATION
  6. TOPAMAX [Concomitant]
     Indication: PRODUCT USED FOR UNKNOWN INDICATION

REACTIONS (2)
  - Convulsion [Unknown]
  - Drug dose omission [Unknown]
